FAERS Safety Report 9769219 (Version 1)
Quarter: 2013Q4

REPORT INFORMATION
  Report Type: Spontaneous
  Country: US (occurrence: US)
  Receive Date: 20131218
  Receipt Date: 20131218
  Transmission Date: 20140711
  Serious: No
  Sender: FDA-Public Use
  Company Number: US-009507513-1312USA001929

PATIENT
  Age: 43 Year
  Sex: Male

DRUGS (1)
  1. NUVARING [Suspect]
     Dosage: UNK DF, UNK

REACTIONS (2)
  - Wound haemorrhage [Unknown]
  - Injury [Not Recovered/Not Resolved]
